FAERS Safety Report 5890008-1 (Version None)
Quarter: 2008Q3

REPORT INFORMATION
  Report Type: 
  Country: None (occurrence: None)
  Receive Date: 20080919
  Receipt Date: 20080912
  Transmission Date: 20090109
  Serious: Yes (Life-Threatening)
  Sender: FDA-Public Use
  Company Number: DK-PFIZER INC-2005120405

PATIENT
  Age: 80 Year
  Sex: Female

DRUGS (4)
  1. DIFLUCAN [Suspect]
     Indication: ILL-DEFINED DISORDER
     Route: 048
     Dates: start: 20050516, end: 20050607
  2. NAXOGIN [Interacting]
     Indication: LARYNGEAL CANCER
     Route: 048
     Dates: start: 20050504, end: 20050610
  3. PHENPROCOUMON [Interacting]
     Indication: ATRIAL FIBRILLATION
     Route: 048
     Dates: start: 19880101
  4. DICLOFENAC [Suspect]
     Indication: ILL-DEFINED DISORDER
     Route: 048
     Dates: start: 20050506, end: 20050522

REACTIONS (5)
  - DRUG INTERACTION [None]
  - GASTROINTESTINAL HAEMORRHAGE [None]
  - HAEMATEMESIS [None]
  - HAEMOGLOBIN DECREASED [None]
  - INTERNATIONAL NORMALISED RATIO ABNORMAL [None]
